FAERS Safety Report 4548435-0 (Version None)
Quarter: 2005Q1

REPORT INFORMATION
  Report Type: 
  Country: None (occurrence: None)
  Receive Date: 20050106
  Receipt Date: 20050106
  Transmission Date: 20050727
  Serious: Yes (Hospitalization)
  Sender: FDA-Public Use
  Company Number: None

PATIENT
  Age: 24 Year
  Sex: Female

DRUGS (2)
  1. CISPLATIN [Suspect]
     Indication: NEOPLASM MALIGNANT
     Dosage: 80 MG/M2 IV (TOTAL GIVEN 125 MG)
     Route: 042
     Dates: start: 20041221
  2. FLUOROURACIL [Suspect]
     Dosage: 1000 MG/M2 IV CT. (TOTAL 6320 MG)
     Route: 042
     Dates: start: 20041221, end: 20041224

REACTIONS (1)
  - CATHETER SITE CELLULITIS [None]
